FAERS Safety Report 8291014-2 (Version None)
Quarter: 2012Q2

REPORT INFORMATION
  Report Type: 
  Country: None (occurrence: None)
  Receive Date: 20120417
  Receipt Date: 20110914
  Transmission Date: 20120825
  Serious: Yes (Other)
  Sender: FDA-Public Use
  Company Number: US-ASTRAZENECA-2011SE55298

PATIENT
  Age: 74 Year
  Sex: Female
  Weight: 86.2 kg

DRUGS (5)
  1. CARVEDILOL [Concomitant]
  2. FEIRONOLAPTONE [Concomitant]
  3. NEXIUM [Suspect]
     Route: 048
  4. LIPITOR [Concomitant]
  5. DIOVAN [Concomitant]

REACTIONS (1)
  - DYSPNOEA [None]
